FAERS Safety Report 5919851-7 (Version None)
Quarter: 2008Q4

REPORT INFORMATION
  Report Type: 
  Country: None (occurrence: None)
  Receive Date: 20081015
  Receipt Date: 20081009
  Transmission Date: 20090506
  Serious: Yes (Other)
  Sender: FDA-Public Use
  Company Number: GB-ABBOTT-08P-167-0481102-00

PATIENT
  Age: 55 Year
  Sex: Male

DRUGS (1)
  1. HUMIRA [Suspect]
     Indication: CROHN'S DISEASE
     Dosage: HAS RECEIVED 3 DOSES-80MG X2, AND 40MG X1

REACTIONS (2)
  - BURSITIS INFECTIVE [None]
  - LACERATION [None]
